FAERS Safety Report 17285763 (Version 1)
Quarter: 2020Q1

REPORT INFORMATION
  Report Type: Report from Study
  Country: ES (occurrence: ES)
  Receive Date: 20200118
  Receipt Date: 20200118
  Transmission Date: 20200409
  Serious: Yes (Life-Threatening, Other)
  Sender: FDA-Public Use
  Company Number: ES-TEVA-2020-ES-1168283

PATIENT
  Age: 20 Year
  Sex: Male

DRUGS (1)
  1. IBUPROFENO (1769A) [Suspect]
     Active Substance: IBUPROFEN
     Dosage: ORAL 400 MG SINGLE DOSE
     Route: 048
     Dates: start: 20190801, end: 20190801

REACTIONS (1)
  - Anaphylactic reaction [Recovered/Resolved]

NARRATIVE: CASE EVENT DATE: 20190801
